FAERS Safety Report 6233330-1 (Version None)
Quarter: 2009Q2

REPORT INFORMATION
  Report Type: 
  Country: None (occurrence: None)
  Receive Date: 20090615
  Receipt Date: 20090615
  Transmission Date: 20091009
  Serious: Yes (Hospitalization, Other)
  Sender: FDA-Public Use
  Company Number: None

PATIENT
  Age: 52 Year
  Sex: Male

DRUGS (1)
  1. DURAPREP [Suspect]

REACTIONS (3)
  - IMPAIRED HEALING [None]
  - PROCEDURAL COMPLICATION [None]
  - SKIN LACERATION [None]
